FAERS Safety Report 18040648 (Version 2)
Quarter: 2020Q3

REPORT INFORMATION
  Report Type: Spontaneous
  Country: US (occurrence: US)
  Receive Date: 20200717
  Receipt Date: 20200720
  Transmission Date: 20201103
  Serious: Yes (Death, Other)
  Sender: FDA-Public Use
  Company Number: US-GLAXOSMITHKLINE-US2020134528

PATIENT
  Age: 84 Year

DRUGS (4)
  1. RANITIDINE HCI [Suspect]
     Active Substance: RANITIDINE HYDROCHLORIDE
  2. RANITIDINE. [Suspect]
     Active Substance: RANITIDINE
  3. ZANTAC [Suspect]
     Active Substance: RANITIDINE HYDROCHLORIDE
  4. ZANTAC [Suspect]
     Active Substance: RANITIDINE HYDROCHLORIDE

REACTIONS (4)
  - Bladder cancer [Unknown]
  - Gastric cancer [Unknown]
  - Neoplasm malignant [Fatal]
  - Renal cancer [Unknown]
